FAERS Safety Report 25203110 (Version 2)
Quarter: 2025Q2

REPORT INFORMATION
  Report Type: Spontaneous
  Country: PK (occurrence: PK)
  Receive Date: 20250416
  Receipt Date: 20250609
  Transmission Date: 20250716
  Serious: Yes (Other)
  Sender: PFIZER
  Company Number: PK-PFIZER INC-PV202500008823

PATIENT
  Age: 29 Year
  Sex: Male
  Weight: 40 kg

DRUGS (10)
  1. IXIFI [Suspect]
     Active Substance: INFLIXIMAB-QBTX
     Indication: Crohn^s disease
     Route: 042
     Dates: start: 202409
  2. PHENIRAMINE MALEATE [Concomitant]
     Active Substance: PHENIRAMINE MALEATE
     Indication: Premedication
     Route: 042
  3. PHENIRAMINE MALEATE [Concomitant]
     Active Substance: PHENIRAMINE MALEATE
  4. COLOFAC [MEBEVERINE EMBONATE] [Concomitant]
     Indication: Muscle spasms
     Dosage: UNK, 3X/DAY (FOR 1 MONTH, AS NEEDED)
  5. DELTACORTRIL [Concomitant]
     Active Substance: PREDNISOLONE
     Dosage: 5 MG, 1X/DAY (FOR 1 WEEKS)
     Route: 048
  6. ELEZO [Concomitant]
     Dosage: UNK, 1X/DAY
  7. IMURAN [Concomitant]
     Active Substance: AZATHIOPRINE
     Dosage: 50 MG, 2X/DAY
  8. PREDNISOLONE [Concomitant]
     Active Substance: PREDNISOLONE
     Dosage: 5 MG, DAILY (FOR 1 WEEK)
     Route: 048
  9. SOLU-CORTEF [Concomitant]
     Active Substance: HYDROCORTISONE SODIUM SUCCINATE
     Indication: Premedication
  10. VENOFER [Concomitant]
     Active Substance: IRON SUCROSE
     Dosage: 200 MG, WEEKLY (4 WEEKS)

REACTIONS (4)
  - Colonic fistula [Unknown]
  - Urinary tract infection [Unknown]
  - Therapeutic product effect decreased [Recovering/Resolving]
  - Off label use [Unknown]

NARRATIVE: CASE EVENT DATE: 20240901
